FAERS Safety Report 22797305 (Version 2)
Quarter: 2024Q2

REPORT INFORMATION
  Report Type: Spontaneous
  Country: US (occurrence: US)
  Receive Date: 20230808
  Receipt Date: 20240508
  Transmission Date: 20240716
  Serious: No
  Sender: FDA-Public Use
  Company Number: US-AMGEN-USASP2023137833

PATIENT
  Age: 86 Year
  Sex: Female

DRUGS (6)
  1. OTEZLA [Suspect]
     Active Substance: APREMILAST
     Indication: Psoriatic arthropathy
     Dosage: 30 MILLIGRAM, BID
     Route: 048
     Dates: start: 201803
  2. TYVASO [Concomitant]
     Active Substance: TREPROSTINIL
     Indication: Pulmonary arterial hypertension
     Dosage: 64 MICROGRAM, QID
     Dates: start: 202303
  3. OFEV [Concomitant]
     Active Substance: NINTEDANIB
     Indication: Pulmonary hypertension
     Dosage: 100 MILLIGRAM, BID
     Route: 048
     Dates: start: 20230105
  4. OFEV [Concomitant]
     Active Substance: NINTEDANIB
     Indication: Lung disorder
  5. OFEV [Concomitant]
     Active Substance: NINTEDANIB
     Indication: Hypoxia
  6. OFEV [Concomitant]
     Active Substance: NINTEDANIB
     Indication: Idiopathic pulmonary fibrosis

REACTIONS (9)
  - Therapy non-responder [Unknown]
  - Intentional product misuse [Not Recovered/Not Resolved]
  - Pruritus [Unknown]
  - Skin burning sensation [Unknown]
  - Therapy interrupted [Unknown]
  - Throat irritation [Unknown]
  - Erythema [Unknown]
  - Cough [Not Recovered/Not Resolved]
  - Diarrhoea [Not Recovered/Not Resolved]

NARRATIVE: CASE EVENT DATE: 20230101
